FAERS Safety Report 9824934 (Version 9)
Quarter: 2014Q1

REPORT INFORMATION
  Report Type: Spontaneous
  Country: US (occurrence: US)
  Receive Date: 20140117
  Receipt Date: 20140313
  Transmission Date: 20141002
  Serious: Yes (Other)
  Sender: FDA-Public Use
  Company Number: US-JNJFOC-20140105229

PATIENT
  Age: 35 Year
  Sex: Male
  Weight: 65.77 kg

DRUGS (4)
  1. REMICADE [Suspect]
     Indication: CROHN^S DISEASE
     Dosage: 5 MG/KG
     Route: 042
     Dates: start: 20130811, end: 20131224
  2. 6-MERCAPTOPURINE [Suspect]
     Indication: PRODUCT USED FOR UNKNOWN INDICATION
     Route: 065
     Dates: end: 201310
  3. WARFARIN [Concomitant]
     Dosage: 1 TABLET EVERY AFTERNOON
     Route: 065
  4. TOPROL  XL [Concomitant]
     Indication: MITRAL VALVE PROLAPSE
     Dosage: 24 HR TABLET
     Route: 048

REACTIONS (1)
  - Invasive ductal breast carcinoma [Not Recovered/Not Resolved]
